FAERS Safety Report 24129223 (Version 1)
Quarter: 2024Q3

REPORT INFORMATION
  Report Type: Other
  Country: CA (occurrence: CA)
  Receive Date: 20240723
  Receipt Date: 20240723
  Transmission Date: 20241017
  Serious: Yes (Death, Other)
  Sender: TARO
  Company Number: CA-TARO PHARMACEUTICALS USA INC.-2024TAR01022

PATIENT

DRUGS (3)
  1. WARFARIN [Suspect]
     Active Substance: WARFARIN
     Indication: Product used for unknown indication
     Dosage: 4 MG,1 EVERY 1 DAYS
     Route: 065
  2. ENOXAPARIN [Suspect]
     Active Substance: ENOXAPARIN
     Indication: Product used for unknown indication
     Dosage: 60 MILLIGRAM, 2 EVERY 1 DAYS
     Route: 058
  3. HEPARIN SODIUM [Suspect]
     Active Substance: HEPARIN SODIUM
     Indication: Product used for unknown indication
     Dosage: UNK
     Route: 042

REACTIONS (5)
  - Haemoglobin decreased [Fatal]
  - Hypotension [Fatal]
  - Hypovolaemic shock [Fatal]
  - Shock haemorrhagic [Fatal]
  - Retroperitoneal haemorrhage [Fatal]
